FAERS Safety Report 24292184 (Version 1)
Quarter: 2024Q3

REPORT INFORMATION
  Report Type: Spontaneous
  Country: US (occurrence: US)
  Receive Date: 20240906
  Receipt Date: 20240906
  Transmission Date: 20241017
  Serious: No
  Sender: DOMPE FARMACEUTICI
  Company Number: US-FARMAPROD-202307-2107

PATIENT
  Sex: Male

DRUGS (13)
  1. OXERVATE [Suspect]
     Active Substance: CENEGERMIN-BKBJ
     Indication: Neurotrophic keratopathy
     Route: 047
     Dates: start: 20230710, end: 20230912
  2. OXERVATE [Suspect]
     Active Substance: CENEGERMIN-BKBJ
     Route: 047
     Dates: start: 20240208, end: 202402
  3. OXERVATE [Suspect]
     Active Substance: CENEGERMIN-BKBJ
     Route: 047
     Dates: start: 20240401
  4. OXERVATE [Suspect]
     Active Substance: CENEGERMIN-BKBJ
  5. LATANOPROST [Concomitant]
     Active Substance: LATANOPROST
  6. DEXAMETHASONE\NEOMYCIN\POLYMYXIN B SULFATE [Concomitant]
     Active Substance: DEXAMETHASONE\NEOMYCIN\POLYMYXIN B SULFATE
  7. FISH OIL [Concomitant]
     Active Substance: FISH OIL
  8. VITAMIN D3 [Concomitant]
     Active Substance: CHOLECALCIFEROL
  9. VITAMINS [Concomitant]
     Active Substance: VITAMINS
     Dosage: GUMMIES
  10. SIMVASTATIN [Concomitant]
     Active Substance: SIMVASTATIN
  11. LEVOTHYROXINE SODIUM [Concomitant]
     Active Substance: LEVOTHYROXINE SODIUM
  12. TAMSULOSIN HYDROCHLORIDE [Concomitant]
     Active Substance: TAMSULOSIN HYDROCHLORIDE
  13. HUMAN SERUM, NORMAL [Concomitant]
     Active Substance: HUMAN SERUM, NORMAL

REACTIONS (5)
  - Vision blurred [Not Recovered/Not Resolved]
  - Wrong technique in product usage process [Not Recovered/Not Resolved]
  - Oxygen saturation decreased [Unknown]
  - Eye pain [Unknown]
  - Eye irritation [Unknown]
